FAERS Safety Report 24373257 (Version 1)
Quarter: 2024Q3

REPORT INFORMATION
  Report Type: Spontaneous
  Country: GB (occurrence: GB)
  Receive Date: 20240927
  Receipt Date: 20240927
  Transmission Date: 20241017
  Serious: Yes (Hospitalization)
  Sender: ROCHE
  Company Number: None

PATIENT
  Sex: Female

DRUGS (2)
  1. MYCOPHENOLIC ACID [Suspect]
     Active Substance: MYCOPHENOLIC ACID
     Indication: Product used for unknown indication
     Dosage: 250 MG (250MG CAP 100 TI)
     Route: 065
  2. TACROLIMUS [Suspect]
     Active Substance: TACROLIMUS
     Indication: Renal transplant
     Dosage: 5 MG, BID
     Route: 048

REACTIONS (2)
  - Blood calcium increased [Not Recovered/Not Resolved]
  - Complications of transplanted kidney [Unknown]

NARRATIVE: CASE EVENT DATE: 20240101
